FAERS Safety Report 6913603 (Version 2)
Quarter: 2013Q3

REPORT INFORMATION
  Report Type: Spontaneous
  Country: NL (occurrence: NL)
  Receive Date: 20090219
  Receipt Date: 20130715
  Transmission Date: 20140515
  Serious: Yes (Other)
  Sender: FDA-Public Use
  Company Number: NL-ELI_LILLY_AND_COMPANY-NL200902000978

PATIENT
  Age: 30 Year
  Sex: Female
  Weight: 56 kg

DRUGS (2)
  1. CYMBALTA [Suspect]
     Indication: DEPRESSION
     Dosage: 30 MG, 2/D
     Route: 065
     Dates: start: 20080326
  2. CYMBALTA [Suspect]
     Dosage: 30 MG, DAILY (1/D)
     Route: 065
     Dates: end: 20090118

REACTIONS (9)
  - Hyperthyroidism [Recovered/Resolved]
  - Abdominal pain upper [Recovered/Resolved]
  - Paraesthesia [Not Recovered/Not Resolved]
  - Eructation [Recovering/Resolving]
  - Heart rate increased [Unknown]
  - Myalgia [Unknown]
  - Coordination abnormal [Not Recovered/Not Resolved]
  - Fatigue [Unknown]
  - Abasia [Not Recovered/Not Resolved]
